FAERS Safety Report 24276324 (Version 3)
Quarter: 2024Q4

REPORT INFORMATION
  Report Type: Report from Study
  Country: US (occurrence: US)
  Receive Date: 20240903
  Receipt Date: 20241024
  Transmission Date: 20250115
  Serious: Yes (Other)
  Sender: ABBVIE
  Company Number: US-ABBVIE-5901763

PATIENT
  Sex: Female

DRUGS (4)
  1. SKYRIZI [Suspect]
     Active Substance: RISANKIZUMAB-RZAA
     Indication: Psoriatic arthropathy
     Dosage: WEEK 4?STRENGTH: 150MG/ML
     Route: 058
     Dates: start: 20240514, end: 20240514
  2. SKYRIZI [Suspect]
     Active Substance: RISANKIZUMAB-RZAA
     Dosage: WEEK 0?STRENGTH: 150MG/ML
     Route: 058
     Dates: start: 20240415, end: 20240415
  3. SKYRIZI [Suspect]
     Active Substance: RISANKIZUMAB-RZAA
     Dosage: STRENGTH: 150MG/ML, THEN EVERY 12 WEEKS THEREAFTER
     Route: 058
     Dates: start: 20240813
  4. SKYRIZI [Suspect]
     Active Substance: RISANKIZUMAB-RZAA
     Route: 058
     Dates: start: 20240328

REACTIONS (2)
  - Lung neoplasm malignant [Not Recovered/Not Resolved]
  - Pain [Not Recovered/Not Resolved]

NARRATIVE: CASE EVENT DATE: 20240101
